FAERS Safety Report 14588364 (Version 1)
Quarter: 2018Q1

REPORT INFORMATION
  Report Type: Spontaneous
  Country: JP (occurrence: JP)
  Receive Date: 20180301
  Receipt Date: 20180301
  Transmission Date: 20180509
  Serious: Yes (Hospitalization)
  Sender: FDA-Public Use
  Company Number: JP-MYLANLABS-2018M1013929

PATIENT
  Age: 65 Year
  Sex: Male

DRUGS (2)
  1. PREDNISONE. [Suspect]
     Active Substance: PREDNISONE
     Indication: IMMUNE THROMBOCYTOPENIC PURPURA
     Dosage: 60 MG DAILY
     Route: 048
  2. BCG [Suspect]
     Active Substance: BCG VACCINE
     Indication: BLADDER CANCER
     Dosage: 80 MG; SIX COURSES OF BCG THERAPY INJECTED THROUGH A CATHETER INTO THE BLADDER EVERY WEEK FOR 6 W...
     Route: 043

REACTIONS (2)
  - Aortic aneurysm [Recovering/Resolving]
  - Condition aggravated [Recovering/Resolving]
